FAERS Safety Report 10094239 (Version 5)
Quarter: 2016Q4

REPORT INFORMATION
  Report Type: Report from Study
  Country: JP (occurrence: JP)
  Receive Date: 20140422
  Receipt Date: 20161219
  Transmission Date: 20170206
  Serious: Yes (Other)
  Sender: FDA-Public Use
  Company Number: JP-ROCHE-1387365

PATIENT
  Age: 44 Year
  Sex: Female
  Weight: 64 kg

DRUGS (36)
  1. PREDONINE [Suspect]
     Active Substance: PREDNISOLONE\PREDNISOLONE ACETATE\PREDNISOLONE SODIUM SUCCINATE
     Route: 048
     Dates: start: 20130510, end: 20130722
  2. PREDONINE [Suspect]
     Active Substance: PREDNISOLONE\PREDNISOLONE ACETATE\PREDNISOLONE SODIUM SUCCINATE
     Route: 048
     Dates: start: 20140610
  3. BIOTOWA [Concomitant]
     Indication: ASTHMA
     Dosage: 400 MG, QD
     Route: 048
     Dates: start: 201010, end: 20120528
  4. PREDONINE [Suspect]
     Active Substance: PREDNISOLONE\PREDNISOLONE ACETATE\PREDNISOLONE SODIUM SUCCINATE
     Route: 048
     Dates: start: 20120820, end: 20130124
  5. PREDONINE [Suspect]
     Active Substance: PREDNISOLONE\PREDNISOLONE ACETATE\PREDNISOLONE SODIUM SUCCINATE
     Route: 048
     Dates: start: 20130417, end: 20130509
  6. PREDONINE [Suspect]
     Active Substance: PREDNISOLONE\PREDNISOLONE ACETATE\PREDNISOLONE SODIUM SUCCINATE
     Route: 048
     Dates: start: 20130723, end: 20131223
  7. SYMBICORT [Concomitant]
     Active Substance: BUDESONIDE\FORMOTEROL FUMARATE DIHYDRATE
     Indication: ASTHMA
     Dosage: 2 UG, TID
     Route: 055
     Dates: start: 20110801
  8. THEODRIP [Concomitant]
     Dosage: 200 ML, UNK
     Route: 041
     Dates: start: 20120629, end: 20120629
  9. THEODRIP [Concomitant]
     Dosage: 200 ML, UNK
     Route: 041
     Dates: start: 20120717, end: 20120717
  10. SOLU-MEDROL [Concomitant]
     Active Substance: METHYLPREDNISOLONE SODIUM SUCCINATE
     Route: 065
     Dates: start: 20120615
  11. SOLU-MEDROL [Concomitant]
     Active Substance: METHYLPREDNISOLONE SODIUM SUCCINATE
     Route: 065
     Dates: end: 20130115
  12. OMALIZUMAB [Suspect]
     Active Substance: OMALIZUMAB
     Indication: ASTHMA
     Route: 058
     Dates: start: 20120615
  13. SINGULAIR [Concomitant]
     Active Substance: MONTELUKAST SODIUM
     Indication: ASTHMA
     Dosage: 10 MG, QD
     Route: 048
     Dates: start: 201010
  14. PREDONINE [Suspect]
     Active Substance: PREDNISOLONE\PREDNISOLONE ACETATE\PREDNISOLONE SODIUM SUCCINATE
     Route: 048
     Dates: start: 20120419, end: 20120522
  15. PREDONINE [Suspect]
     Active Substance: PREDNISOLONE\PREDNISOLONE ACETATE\PREDNISOLONE SODIUM SUCCINATE
     Route: 048
     Dates: start: 20131224, end: 20140609
  16. ALVESCO [Concomitant]
     Active Substance: CICLESONIDE
     Indication: ASTHMA
     Dosage: 2 UG, TID
     Route: 055
     Dates: start: 20120625
  17. THEODRIP [Concomitant]
     Dosage: 200 ML, UNK
     Route: 041
     Dates: start: 20130115, end: 20130115
  18. PREDONINE [Suspect]
     Active Substance: PREDNISOLONE\PREDNISOLONE ACETATE\PREDNISOLONE SODIUM SUCCINATE
     Indication: ASTHMA
     Route: 048
     Dates: start: 20120418
  19. THEO-DUR [Concomitant]
     Active Substance: THEOPHYLLINE ANHYDROUS
     Indication: ASTHMA
     Dosage: 200 MG, BID
     Route: 048
     Dates: start: 201010, end: 20120528
  20. OMALIZUMAB [Suspect]
     Active Substance: OMALIZUMAB
     Route: 058
     Dates: start: 20120713
  21. PREDONINE [Suspect]
     Active Substance: PREDNISOLONE\PREDNISOLONE ACETATE\PREDNISOLONE SODIUM SUCCINATE
     Route: 048
     Dates: start: 20120523, end: 20120528
  22. PREDONINE [Suspect]
     Active Substance: PREDNISOLONE\PREDNISOLONE ACETATE\PREDNISOLONE SODIUM SUCCINATE
     Route: 048
     Dates: start: 20130125, end: 20130324
  23. PREDONINE [Suspect]
     Active Substance: PREDNISOLONE\PREDNISOLONE ACETATE\PREDNISOLONE SODIUM SUCCINATE
     Route: 048
     Dates: start: 20130325, end: 20130416
  24. THEODRIP [Concomitant]
     Indication: ASTHMA
     Dosage: 200 ML, UNK
     Route: 041
     Dates: start: 20120615, end: 20120615
  25. THEODRIP [Concomitant]
     Dosage: 200 ML, UNK
     Route: 041
     Dates: start: 20120702, end: 20120702
  26. THEODRIP [Concomitant]
     Dosage: 200 ML, UNK
     Route: 041
     Dates: start: 20130217, end: 20130217
  27. OMALIZUMAB [Suspect]
     Active Substance: OMALIZUMAB
     Route: 058
     Dates: start: 20130222
  28. OMALIZUMAB [Suspect]
     Active Substance: OMALIZUMAB
     Route: 058
     Dates: start: 20130322
  29. BIOTOWA [Concomitant]
     Dosage: 200 MG, TID
     Route: 048
  30. MEPTIN AIR [Concomitant]
     Active Substance: PROCATEROL HYDROCHLORIDE
     Indication: ASTHMA
     Dosage: UNK, PRN
     Route: 055
     Dates: start: 201010
  31. THEODRIP [Concomitant]
     Dosage: 200 ML, UNK
     Route: 041
     Dates: start: 20120115, end: 20120115
  32. THEODRIP [Concomitant]
     Dosage: 200 ML, UNK
     Route: 041
     Dates: start: 20120217, end: 20120217
  33. THEO-DUR [Concomitant]
     Active Substance: THEOPHYLLINE ANHYDROUS
     Dosage: 200 MG, BID
     Route: 048
     Dates: start: 20130419
  34. PREDONINE [Suspect]
     Active Substance: PREDNISOLONE\PREDNISOLONE ACETATE\PREDNISOLONE SODIUM SUCCINATE
     Route: 048
     Dates: start: 20120529, end: 20120819
  35. THEODRIP [Concomitant]
     Dosage: 200 ML, UNK
     Route: 041
     Dates: start: 20120619, end: 20120619
  36. THEO-DUR [Concomitant]
     Active Substance: THEOPHYLLINE ANHYDROUS
     Dosage: 200 MG, TID
     Route: 048
     Dates: start: 20120529, end: 20130418

REACTIONS (11)
  - Abasia [Unknown]
  - Neuropathy peripheral [Recovering/Resolving]
  - Asthma [Unknown]
  - Neurological eyelid disorder [Unknown]
  - Illusion [Unknown]
  - Spinal osteoarthritis [Recovering/Resolving]
  - Blood immunoglobulin E increased [Unknown]
  - Eosinophilic granulomatosis with polyangiitis [Recovering/Resolving]
  - Neurological symptom [Recovering/Resolving]
  - Muscular weakness [Unknown]
  - Obesity [Recovering/Resolving]

NARRATIVE: CASE EVENT DATE: 201303
